FAERS Safety Report 10037611 (Version 1)
Quarter: 2014Q1

REPORT INFORMATION
  Report Type: Spontaneous
  Country: US (occurrence: None)
  Receive Date: 20140325
  Receipt Date: 20140325
  Transmission Date: 20141002
  Serious: Yes (Hospitalization)
  Sender: FDA-Public Use
  Company Number: None

PATIENT
  Age: 51 Year
  Sex: Female

DRUGS (13)
  1. NEXIUM 40MG ASTRAZENECA [Suspect]
     Indication: GASTROOESOPHAGEAL REFLUX DISEASE
     Route: 048
     Dates: start: 20030101, end: 20140324
  2. ADVAIR [Concomitant]
  3. CARAFATE [Concomitant]
  4. RANEXA [Concomitant]
  5. GABAPENTIN [Concomitant]
  6. LEVOTHYROXINE [Concomitant]
  7. ATENOLOL [Concomitant]
  8. ATORVASTATIN [Concomitant]
  9. MAGOX [Concomitant]
  10. FISH OIL [Concomitant]
  11. VITAMIN D3 [Concomitant]
  12. XARELTO [Concomitant]
  13. ASPIRIN [Concomitant]

REACTIONS (2)
  - Chest pain [None]
  - Hypomagnesaemia [None]
